FAERS Safety Report 24384357 (Version 2)
Quarter: 2024Q4

REPORT INFORMATION
  Report Type: Report from Study
  Country: JP (occurrence: JP)
  Receive Date: 20241001
  Receipt Date: 20241030
  Transmission Date: 20250114
  Serious: Yes (Death)
  Sender: RECORDATI
  Company Number: JP-RECORDATI RARE DISEASE INC.-2024007521

PATIENT

DRUGS (1)
  1. NEOPROFEN [Suspect]
     Active Substance: IBUPROFEN LYSINE
     Indication: Patent ductus arteriosus
     Dosage: 10 MILLIGRAM/KILOGRAM
     Route: 042
     Dates: start: 20230324, end: 20230324

REACTIONS (2)
  - Meconium ileus [Fatal]
  - Enterocolitis [Fatal]

NARRATIVE: CASE EVENT DATE: 20230324
